FAERS Safety Report 24572009 (Version 1)
Quarter: 2024Q4

REPORT INFORMATION
  Report Type: Spontaneous
  Country: US (occurrence: None)
  Receive Date: 20241031
  Receipt Date: 20241031
  Transmission Date: 20250115
  Serious: Yes (Life-Threatening)
  Sender: Public
  Company Number: None

PATIENT
  Age: 74 Year
  Sex: Male

DRUGS (1)
  1. FLUORESCEIN SODIUM [Suspect]
     Active Substance: FLUORESCEIN SODIUM
     Indication: Angiogram retina
     Dosage: OTHER ROUTE : OTHER?
     Route: 050
     Dates: start: 20240814, end: 20240814

REACTIONS (8)
  - Angiogram retina [None]
  - Dyspnoea [None]
  - Abdominal pain [None]
  - Hyperhidrosis [None]
  - Hypotension [None]
  - Tachycardia [None]
  - Dizziness [None]
  - Vomiting [None]

NARRATIVE: CASE EVENT DATE: 20240814
